FAERS Safety Report 8085764-0 (Version None)
Quarter: 2012Q1

REPORT INFORMATION
  Report Type: 
  Country: None (occurrence: None)
  Receive Date: 20120128
  Receipt Date: 20110403
  Transmission Date: 20120608
  Serious: No
  Sender: FDA-Public Use
  Company Number: US-ABBOTT-11P-163-0716760-00

PATIENT
  Age: 44 Year
  Sex: Male

DRUGS (1)
  1. HUMIRA [Suspect]
     Indication: CROHN'S DISEASE
     Dates: start: 20110325, end: 20110325

REACTIONS (7)
  - PARAESTHESIA [None]
  - DYSPNOEA [None]
  - VISUAL IMPAIRMENT [None]
  - NIGHT SWEATS [None]
  - DIZZINESS [None]
  - HEADACHE [None]
  - PYREXIA [None]
